FAERS Safety Report 7889389-9 (Version None)
Quarter: 2011Q4

REPORT INFORMATION
  Report Type: 
  Country: None (occurrence: None)
  Receive Date: 20111103
  Receipt Date: 20111031
  Transmission Date: 20120403
  Serious: Yes (Death)
  Sender: FDA-Public Use
  Company Number: HK-ELI_LILLY_AND_COMPANY-HK201103000868

PATIENT
  Sex: Male
  Weight: 56.2 kg

DRUGS (4)
  1. OTOSPORIN [Concomitant]
  2. CISPLATIN [Suspect]
     Indication: NASOPHARYNGEAL CANCER
     Dosage: 65 MG, ON DAY 1 AND 8 EVERY 3 WEEKS
     Route: 042
     Dates: start: 20101105, end: 20110126
  3. CISPLATIN [Suspect]
     Dosage: 64 MG, OTHER ON DAY 1 AND 8 EVERY 3 WEEKS
     Route: 042
     Dates: start: 20110126, end: 20110126
  4. GEMCITABINE HYDROCHLORIDE [Suspect]
     Indication: NASOPHARYNGEAL CANCER
     Dosage: UNK, ON DAYS 1 AND 8 EVERY 3 WEEKS
     Route: 042
     Dates: start: 20101105, end: 20110126

REACTIONS (1)
  - HAEMATEMESIS [None]
